FAERS Safety Report 4938307-1 (Version None)
Quarter: 2006Q1

REPORT INFORMATION
  Report Type: 
  Country: None (occurrence: None)
  Receive Date: 20060309
  Receipt Date: 20060213
  Transmission Date: 20060701
  Serious: Yes (Other)
  Sender: FDA-Public Use
  Company Number: GB-GLAXOSMITHKLINE-B0411460A

PATIENT
  Age: 43 Year
  Sex: Male

DRUGS (5)
  1. AVANDAMET [Suspect]
     Route: 048
  2. INSULIN [Concomitant]
  3. ATORVASTATIN CALCIUM [Concomitant]
  4. ATENOLOL [Concomitant]
  5. PERINDOPRIL [Concomitant]

REACTIONS (3)
  - GLAUCOMA [None]
  - MACULAR OEDEMA [None]
  - VISUAL DISTURBANCE [None]
